FAERS Safety Report 15408261 (Version 1)
Quarter: 2018Q3

REPORT INFORMATION
  Report Type: Spontaneous
  Country: US (occurrence: US)
  Receive Date: 20180920
  Receipt Date: 20180920
  Transmission Date: 20181010
  Serious: No
  Sender: FDA-Public Use
  Company Number: US-SA-2018SA262497

PATIENT
  Age: 58 Year
  Sex: Female

DRUGS (2)
  1. TRAMADOL. [Concomitant]
     Active Substance: TRAMADOL
  2. KEVZARA [Suspect]
     Active Substance: SARILUMAB
     Dosage: 200 MG, QOW
     Route: 058
     Dates: start: 201712

REACTIONS (1)
  - Surgery [Unknown]
